FAERS Safety Report 9218583 (Version 1)
Quarter: 2013Q1

REPORT INFORMATION
  Report Type: Spontaneous
  Country: US (occurrence: None)
  Receive Date: 20120827
  Receipt Date: 20120827
  Transmission Date: 20140127
  Serious: No
  Sender: FDA-Public Use
  Company Number: 352904

PATIENT
  Age: 54 Year
  Sex: Female
  Weight: 108.4 kg

DRUGS (5)
  1. VICTOZA (LIRAGLUTIDE) SOLUTION FOR INJECTION, 6MG/ML [Suspect]
     Indication: METABOLIC SYNDROME
     Route: 058
     Dates: end: 20120529
  2. AMLODIPINE (AMLODIPINE) [Concomitant]
  3. TOPROL (METOPROLOL SUCCINATE) [Concomitant]
  4. SYNTHROID (LEVOTHYROXINE SODIUM) [Concomitant]
  5. TRAZODONE (TRAZODONE) [Concomitant]

REACTIONS (1)
  - Pancreatitis [None]
